FAERS Safety Report 8434075-X (Version None)
Quarter: 2012Q2

REPORT INFORMATION
  Report Type: 
  Country: None (occurrence: None)
  Receive Date: 20120613
  Receipt Date: 20120601
  Transmission Date: 20120825
  Serious: Yes (Other)
  Sender: FDA-Public Use
  Company Number: GB-TEVA-340829ISR

PATIENT
  Age: 75 Year
  Sex: Male
  Weight: 75 kg

DRUGS (11)
  1. DOXYCYCLINE [Suspect]
     Dates: start: 20120516
  2. VENTOLIN [Concomitant]
     Dates: start: 20120425, end: 20120523
  3. TIOTROPIUM BROMIDE [Concomitant]
     Dates: start: 20120213
  4. OMEPRAZOLE [Concomitant]
     Dates: start: 20120505
  5. BECLOMETHASONE DIPROPIONATE [Concomitant]
     Dates: start: 20111117
  6. SALMETEROL [Concomitant]
     Dates: start: 20120207
  7. TAMSULOSIN HYDROCHLORIDE [Concomitant]
     Dates: start: 20120207
  8. PREDNISOLONE [Concomitant]
     Dates: start: 20120516
  9. PREDNISOLONE [Concomitant]
     Dates: start: 20120505, end: 20120506
  10. ZOLADEX [Concomitant]
     Dates: start: 20120106
  11. FERROUS FUMARATE [Concomitant]
     Dates: start: 20120516

REACTIONS (3)
  - PARAESTHESIA [None]
  - RASH [None]
  - PHOTODERMATOSIS [None]
